FAERS Safety Report 16383399 (Version 1)
Quarter: 2019Q2

REPORT INFORMATION
  Report Type: Spontaneous
  Country: US (occurrence: US)
  Receive Date: 20190517
  Receipt Date: 20190517
  Transmission Date: 20190711
  Serious: No
  Sender: FDA-Public Use
  Company Number: None

PATIENT
  Age: 62 Year
  Sex: Female

DRUGS (3)
  1. ZOFRAN 8MG ODT [Concomitant]
  2. VIT D2 50000IU [Concomitant]
  3. LOSARTAN. [Suspect]
     Active Substance: LOSARTAN
     Route: 048
     Dates: start: 20190506, end: 20190517

REACTIONS (2)
  - Dizziness [None]
  - Gastric disorder [None]

NARRATIVE: CASE EVENT DATE: 20190510
